FAERS Safety Report 9906784 (Version 3)
Quarter: 2014Q1

REPORT INFORMATION
  Report Type: Spontaneous
  Country: SE (occurrence: SE)
  Receive Date: 20140218
  Receipt Date: 20140224
  Transmission Date: 20141002
  Serious: Yes (Other)
  Sender: FDA-Public Use
  Company Number: SE-PFIZER INC-2014042598

PATIENT
  Age: 10 Year
  Sex: Male

DRUGS (2)
  1. EFEXOR DEPOT [Suspect]
     Indication: DEPRESSION
     Dosage: UNK
     Route: 064
     Dates: start: 2003
  2. EFEXOR DEPOT [Suspect]
     Dosage: 150 MG, UNK
     Route: 064

REACTIONS (2)
  - Maternal exposure during pregnancy [Not Recovered/Not Resolved]
  - Gross motor delay [Not Recovered/Not Resolved]
